FAERS Safety Report 18458062 (Version 1)
Quarter: 2020Q4

REPORT INFORMATION
  Report Type: Spontaneous
  Country: US (occurrence: US)
  Receive Date: 20201103
  Receipt Date: 20201103
  Transmission Date: 20210114
  Serious: No
  Sender: FDA-Public Use
  Company Number: US-FARMAPROD-202009-1176

PATIENT
  Age: 85 Year
  Sex: Female

DRUGS (9)
  1. SYSTANE ULTRA [Concomitant]
     Active Substance: POLYETHYLENE GLYCOL 400\PROPYLENE GLYCOL
     Dosage: 0.3 %-0.4%
  2. OFLOXACIN. [Concomitant]
     Active Substance: OFLOXACIN
  3. COSOPT [Concomitant]
     Active Substance: DORZOLAMIDE HYDROCHLORIDE\TIMOLOL MALEATE
     Dosage: 22.3-6.8/1
  4. COMBIGAN [Concomitant]
     Active Substance: BRIMONIDINE TARTRATE\TIMOLOL MALEATE
     Dosage: 0.2%-0.5%
  5. KETOROLAC TROMETHAMINE. [Concomitant]
     Active Substance: KETOROLAC TROMETHAMINE
  6. OXERVATE [Suspect]
     Active Substance: CENEGERMIN-BKBJ
     Indication: NEUROTROPHIC KERATOPATHY
     Route: 047
     Dates: start: 20200818
  7. PREDNISOLONE/NEPAFENAC [Concomitant]
  8. DUREZOL [Concomitant]
     Active Substance: DIFLUPREDNATE
  9. LUMIGAN [Concomitant]
     Active Substance: BIMATOPROST

REACTIONS (5)
  - Product dose omission issue [Unknown]
  - Dry eye [Unknown]
  - Eye irritation [Unknown]
  - Intraocular pressure increased [Unknown]
  - Eye pain [Unknown]

NARRATIVE: CASE EVENT DATE: 20200831
